FAERS Safety Report 23335638 (Version 1)
Quarter: 2023Q4

REPORT INFORMATION
  Report Type: Report from Study
  Country: US (occurrence: None)
  Receive Date: 20231225
  Receipt Date: 20231225
  Transmission Date: 20240109
  Serious: Yes (Other)
  Sender: FDA-Public Use
  Company Number: 2023A290765

PATIENT
  Age: 6241 Day
  Sex: Female
  Weight: 55.8 kg

DRUGS (10)
  1. KOSELUGO [Suspect]
     Active Substance: SELUMETINIB
     Indication: Neurofibromatosis
     Route: 048
     Dates: end: 20231215
  2. CLINDAMYCIN [Concomitant]
     Active Substance: CLINDAMYCIN
  3. DOXYCYCLINE [Concomitant]
     Active Substance: DOXYCYCLINE
  4. FLUOCINOLONE [Concomitant]
     Active Substance: FLUOCINOLONE
  5. LIDOCAINE [Concomitant]
     Active Substance: LIDOCAINE
  6. MINOCYCLINE [Concomitant]
     Active Substance: MINOCYCLINE HYDROCHLORIDE
  7. VITAMINS [Concomitant]
     Active Substance: VITAMINS
  8. PIMECROLIMUS [Concomitant]
     Active Substance: PIMECROLIMUS
  9. PROCHLORPERAZINE [Concomitant]
     Active Substance: PROCHLORPERAZINE
  10. ZOFRAN [Concomitant]
     Active Substance: ONDANSETRON HYDROCHLORIDE

REACTIONS (1)
  - Hepatotoxicity [Unknown]

NARRATIVE: CASE EVENT DATE: 20231215
